FAERS Safety Report 12146769 (Version 2)
Quarter: 2016Q2

REPORT INFORMATION
  Report Type: Spontaneous
  Country: VE (occurrence: VE)
  Receive Date: 20160304
  Receipt Date: 20160405
  Transmission Date: 20160815
  Serious: Yes (Death, Hospitalization, Other)
  Sender: FDA-Public Use
  Company Number: VE-GLAXOSMITHKLINE-VE2016GSK030955

PATIENT
  Age: 14 Year
  Sex: Male

DRUGS (3)
  1. DIAZEPAM. [Concomitant]
     Active Substance: DIAZEPAM
     Indication: AUTISM
  2. LAMOTRIGINE. [Suspect]
     Active Substance: LAMOTRIGINE
     Indication: SEIZURE
     Dosage: UNK ,
  3. DIAZEPAM. [Concomitant]
     Active Substance: DIAZEPAM
     Indication: EPILEPSY
     Dosage: UNK

REACTIONS (6)
  - Cardio-respiratory arrest [Fatal]
  - Drug dose omission [Unknown]
  - Condition aggravated [Unknown]
  - Heart rate increased [Unknown]
  - Seizure [Fatal]
  - Therapy cessation [Fatal]

NARRATIVE: CASE EVENT DATE: 20160216
